FAERS Safety Report 5678318-4 (Version None)
Quarter: 2008Q1

REPORT INFORMATION
  Report Type: 
  Country: None (occurrence: None)
  Receive Date: 20080320
  Receipt Date: 20080307
  Transmission Date: 20080703
  Serious: Yes (Death)
  Sender: FDA-Public Use
  Company Number: 08-188

PATIENT
  Sex: Male

DRUGS (1)
  1. FRAZACLO 100 MG ODT  AZUR PHARMA [Suspect]
     Indication: DRUG USE FOR UNKNOWN INDICATION
     Dosage: 500 MG PO DAILY
     Route: 048
     Dates: start: 20070501

REACTIONS (1)
  - DEATH [None]
